FAERS Safety Report 21306036 (Version 3)
Quarter: 2022Q4

REPORT INFORMATION
  Report Type: Report from Study
  Country: DE (occurrence: None)
  Receive Date: 20220908
  Receipt Date: 20221122
  Transmission Date: 20230112
  Serious: Yes (Hospitalization)
  Sender: FDA-Public Use
  Company Number: DE-ROCHE-3172589

PATIENT
  Age: 38 Year
  Sex: Female
  Weight: 54 kg

DRUGS (20)
  1. ATEZOLIZUMAB [Suspect]
     Active Substance: ATEZOLIZUMAB
     Indication: Triple negative breast cancer
     Dosage: DATE OF LAST DOSE PRIOR TO SAE: 27/JUL/2022
     Route: 042
     Dates: start: 20220413
  2. PACLITAXEL [Suspect]
     Active Substance: PACLITAXEL
     Indication: Triple negative breast cancer
     Dosage: DATE OF LAST DOSE PRIOR TO SAE:20/JUL/2022
     Route: 042
     Dates: start: 20220426
  3. CARBOPLATIN [Suspect]
     Active Substance: CARBOPLATIN
     Indication: Triple negative breast cancer
     Dosage: DATE OF LAST DOSE PRIOR TO SAE: 20/JUL/2022
     Route: 042
     Dates: start: 20220426
  4. EPIRUBICIN [Suspect]
     Active Substance: EPIRUBICIN
     Indication: Triple negative breast cancer
     Dosage: DATE OF LAST DOSE PRIOR TO SAE:27/JUL/2022
     Route: 042
     Dates: start: 20220727, end: 20220727
  5. EPIRUBICIN [Suspect]
     Active Substance: EPIRUBICIN
     Route: 042
     Dates: start: 20220817
  6. CYCLOPHOSPHAMIDE [Suspect]
     Active Substance: CYCLOPHOSPHAMIDE
     Indication: Triple negative breast cancer
     Dosage: DATE OF LAST DOSE PRIOR TO SAE:27/JUL/2022
     Route: 042
     Dates: start: 20220727, end: 20220727
  7. CYCLOPHOSPHAMIDE [Suspect]
     Active Substance: CYCLOPHOSPHAMIDE
     Route: 042
     Dates: start: 20220817
  8. CHLORHEXAMED [Concomitant]
     Dosage: 0.06 %
     Dates: start: 20220609, end: 20220629
  9. DEXTROSE [Concomitant]
     Active Substance: DEXTROSE
     Dosage: 5 %
     Dates: start: 20220426, end: 20220720
  10. PALONOSETRON [Concomitant]
     Active Substance: PALONOSETRON
     Dates: start: 20220426, end: 20220720
  11. DEXAMETHASONE [Concomitant]
     Active Substance: DEXAMETHASONE
     Dates: start: 20220426, end: 20220720
  12. DEXAMETHASONE [Concomitant]
     Active Substance: DEXAMETHASONE
     Dates: start: 20220727, end: 20221002
  13. DEXAMETHASONE [Concomitant]
     Active Substance: DEXAMETHASONE
     Dates: start: 20220727, end: 20220928
  14. CLEMASTINE [Concomitant]
     Active Substance: CLEMASTINE
     Dates: start: 20220426, end: 20220720
  15. BENZYDAMINE [Concomitant]
     Active Substance: BENZYDAMINE
     Dosage: 0.15 %
     Dates: start: 20220629, end: 20220928
  16. AKYNZEO [Concomitant]
     Dosage: 300 MG/0,5MG
     Dates: start: 20220727
  17. MESNA [Concomitant]
     Active Substance: MESNA
     Dates: start: 20220727, end: 20220928
  18. MESNA [Concomitant]
     Active Substance: MESNA
     Dates: start: 20220727, end: 20220928
  19. ONDANSETRON [Concomitant]
     Active Substance: ONDANSETRON
     Dates: start: 20220727, end: 20220928
  20. NEULASTA [Concomitant]
     Active Substance: PEGFILGRASTIM
     Dates: start: 20220729, end: 20220930

REACTIONS (2)
  - Pyrexia [Recovered/Resolved]
  - Neutropenia [Recovered/Resolved]

NARRATIVE: CASE EVENT DATE: 20220804
